FAERS Safety Report 23750385 (Version 1)
Quarter: 2024Q2

REPORT INFORMATION
  Report Type: Spontaneous
  Country: GB (occurrence: GB)
  Receive Date: 20240417
  Receipt Date: 20240417
  Transmission Date: 20240716
  Serious: Yes (Hospitalization)
  Sender: FDA-Public Use
  Company Number: None

PATIENT
  Age: 43 Year
  Sex: Male
  Weight: 138.4 kg

DRUGS (9)
  1. LOSARTAN [Suspect]
     Active Substance: LOSARTAN
     Route: 065
  2. EDOXABAN [Concomitant]
     Active Substance: EDOXABAN
  3. DIGOXIN [Concomitant]
     Active Substance: DIGOXIN
  4. ASPIRIN [Concomitant]
     Active Substance: ASPIRIN
  5. HYDRALAZINE [Concomitant]
     Active Substance: HYDRALAZINE HYDROCHLORIDE
  6. CLONIDINE [Concomitant]
     Active Substance: CLONIDINE
     Dosage: TIME INTERVAL: 0.33333333 DAYS
  7. PANTOPRAZOLE [Concomitant]
     Active Substance: PANTOPRAZOLE
  8. LABETALOL [Concomitant]
     Active Substance: LABETALOL\LABETALOL HYDROCHLORIDE
     Dosage: WITH FOOD
  9. CLOPIDOGREL [Concomitant]
     Active Substance: CLOPIDOGREL BISULFATE
     Dosage: (UNTIL 2.10.24 )

REACTIONS (1)
  - Dysphonia [Recovered/Resolved]
